FAERS Safety Report 9610835 (Version 2)
Quarter: 2013Q4

REPORT INFORMATION
  Report Type: Report from Study
  Country: NL (occurrence: NL)
  Receive Date: 20131009
  Receipt Date: 20131104
  Transmission Date: 20140711
  Serious: Yes (Death)
  Sender: FDA-Public Use
  Company Number: PHHY2013NL113230

PATIENT
  Sex: Female
  Weight: 73 kg

DRUGS (7)
  1. ACLASTA [Suspect]
     Indication: OSTEOPOROSIS
     Dosage: 5 MG, ONCE EVERY 52 WEEKS
     Route: 042
     Dates: start: 20111123
  2. ACLASTA [Suspect]
     Dosage: 5 MG, ONCE EVERY 52 WEEKS
     Route: 042
     Dates: start: 20121122
  3. IMIPRAMINE [Concomitant]
     Dosage: UNK
  4. FENTANYL [Concomitant]
     Dosage: UNK
  5. NIFEDIPINE [Concomitant]
     Dosage: UNK
  6. OMEPRAZOLE [Concomitant]
     Dosage: UNK
  7. PARACETAMOL + CODEINE [Concomitant]
     Dosage: UNK

REACTIONS (2)
  - Death [Fatal]
  - General physical health deterioration [Unknown]
